FAERS Safety Report 15089110 (Version 1)
Quarter: 2018Q2

REPORT INFORMATION
  Report Type: Spontaneous
  Country: US (occurrence: US)
  Receive Date: 20180608
  Receipt Date: 20180608
  Transmission Date: 20180711
  Serious: No
  Sender: FDA-Public Use
  Company Number: None

PATIENT
  Age: 60 Year
  Sex: Female

DRUGS (1)
  1. HYCAMTIN [Suspect]
     Active Substance: TOPOTECAN HYDROCHLORIDE
     Dosage: 4X1MG X5 DAYS DAILY ORAL
     Route: 048
     Dates: start: 20180526, end: 20180608

REACTIONS (1)
  - Alopecia [None]

NARRATIVE: CASE EVENT DATE: 20180601
